FAERS Safety Report 8224251-3 (Version None)
Quarter: 2012Q1

REPORT INFORMATION
  Report Type: 
  Country: None (occurrence: None)
  Receive Date: 20120321
  Receipt Date: 20120309
  Transmission Date: 20120608
  Serious: Yes (Other)
  Sender: FDA-Public Use
  Company Number: PHHY2012TH023234

PATIENT
  Sex: Male

DRUGS (1)
  1. TASIGNA [Suspect]
     Indication: CHRONIC MYELOID LEUKAEMIA
     Dosage: 400 MG, BID
     Route: 048
     Dates: start: 20091221

REACTIONS (6)
  - HYDRONEPHROSIS [None]
  - GASTROENTERITIS [None]
  - CONSTIPATION [None]
  - ABDOMINAL PAIN [None]
  - DYSURIA [None]
  - NEPHROLITHIASIS [None]
